FAERS Safety Report 10052948 (Version 1)
Quarter: 2014Q2

REPORT INFORMATION
  Report Type: Spontaneous
  Country: DK (occurrence: DK)
  Receive Date: 20140402
  Receipt Date: 20140402
  Transmission Date: 20141212
  Serious: Yes (Other)
  Sender: FDA-Public Use
  Company Number: DK-WATSON-2014-05900

PATIENT
  Age: 44 Year
  Sex: Male
  Weight: 150 kg

DRUGS (2)
  1. METRONIDAZOL ACTAVIS [Suspect]
     Indication: TOOTHACHE
     Dosage: 500 MG, TID
     Route: 065
     Dates: start: 20140116, end: 20140122
  2. IBUPROFEN [Concomitant]
     Indication: RHEUMATOID ARTHRITIS
     Dosage: UNK
     Route: 065
     Dates: start: 20070101, end: 20140122

REACTIONS (4)
  - Restless legs syndrome [Not Recovered/Not Resolved]
  - Head discomfort [Not Recovered/Not Resolved]
  - Fatigue [Not Recovered/Not Resolved]
  - Chromaturia [Not Recovered/Not Resolved]
